FAERS Safety Report 7214691-3 (Version None)
Quarter: 2011Q1

REPORT INFORMATION
  Report Type: 
  Country: None (occurrence: None)
  Receive Date: 20110107
  Receipt Date: 20091113
  Transmission Date: 20110831
  Serious: No
  Sender: FDA-Public Use
  Company Number: A0817000A

PATIENT
  Age: 38 Year
  Sex: Female

DRUGS (2)
  1. LOVAZA [Suspect]
     Dosage: 2CAP PER DAY
     Route: 048
     Dates: start: 20080501, end: 20091111
  2. FLU SHOT [Concomitant]

REACTIONS (1)
  - DRUG EXPOSURE DURING PREGNANCY [None]
